FAERS Safety Report 26087400 (Version 1)
Quarter: 2025Q4

REPORT INFORMATION
  Report Type: Report from Study
  Country: BR (occurrence: BR)
  Receive Date: 20251125
  Receipt Date: 20251125
  Transmission Date: 20260118
  Serious: Yes (Other)
  Sender: EMD SERONO INC
  Company Number: BR-Merck Healthcare KGaA-2025059073

PATIENT
  Age: 53 Year
  Sex: Female

DRUGS (3)
  1. MAVENCLAD [Suspect]
     Active Substance: CLADRIBINE
     Indication: Multiple sclerosis
     Dosage: YEAR 1 MONTH 1 THERAPY AT A DOSE OF TWO TABLETS ON DAY 1 AND ONE TABLET ON DAYS 2 TO 5
     Dates: start: 20241031
  2. MAVENCLAD [Suspect]
     Active Substance: CLADRIBINE
     Dosage: YEAR 1 MONTH 2 THERAPY AT A DOSE OF TWO TABLETS ON DAY 1 AND ONE TABLET ON DAYS 2 TO 5
     Dates: start: 20241130
  3. MAVENCLAD [Suspect]
     Active Substance: CLADRIBINE
     Dosage: YEAR 2 MONTH 1 THERAPY AT A DOSE OF TWO TABLETS ON DAY 1 AND ONE TABLET ON DAYS 2 TO 5

REACTIONS (1)
  - White blood cell count decreased [Unknown]

NARRATIVE: CASE EVENT DATE: 20251101
